FAERS Safety Report 5466688-1 (Version None)
Quarter: 2007Q3

REPORT INFORMATION
  Report Type: 
  Country: None (occurrence: None)
  Receive Date: 20070924
  Receipt Date: 20070924
  Transmission Date: 20080115
  Serious: Yes (Hospitalization)
  Sender: FDA-Public Use
  Company Number: None

PATIENT
  Age: 82 Year
  Sex: Male

DRUGS (2)
  1. DIGOXIN [Suspect]
     Dosage: 125MCG EVERY DAY PO
     Route: 048
     Dates: start: 20061121, end: 20070727
  2. VERAPAMIL [Suspect]
     Dosage: 240MG EVERY DAY PO
     Route: 048
     Dates: start: 20040121

REACTIONS (5)
  - BALANCE DISORDER [None]
  - CONFUSIONAL STATE [None]
  - DRUG INTERACTION [None]
  - DYSARTHRIA [None]
  - MUSCULAR WEAKNESS [None]
